FAERS Safety Report 16152332 (Version 3)
Quarter: 2019Q2

REPORT INFORMATION
  Report Type: Spontaneous
  Country: FR (occurrence: FR)
  Receive Date: 20190403
  Receipt Date: 20190415
  Transmission Date: 20190711
  Serious: No
  Sender: FDA-Public Use
  Company Number: FR-MYLANLABS-2019M1030139

PATIENT
  Age: 66 Year
  Sex: Female

DRUGS (2)
  1. FORTZAAR [Suspect]
     Active Substance: HYDROCHLOROTHIAZIDE\LOSARTAN POTASSIUM
     Indication: BLOOD PRESSURE ABNORMAL
     Dosage: 1 DOSAGE FORM, QD (EVERY DAY AT FIXED HOUR)
  2. DILTIAZEM MYLAN LP 300 MG, G?LULE ? LIB?RATION PROLONG?E [Suspect]
     Active Substance: DILTIAZEM
     Indication: HYPERTENSION
     Dosage: UNK UNK, QD (EVERY DAY AT FIXED HOUR, IN THE EVENING.)
     Route: 048

REACTIONS (1)
  - Drug ineffective [Unknown]
